FAERS Safety Report 11280140 (Version 1)
Quarter: 2015Q3

REPORT INFORMATION
  Report Type: Spontaneous
  Country: US (occurrence: None)
  Receive Date: 20150716
  Receipt Date: 20150716
  Transmission Date: 20151125
  Serious: No
  Sender: FDA-Public Use
  Company Number: None

PATIENT
  Age: 30 Year
  Sex: Female
  Weight: 60.78 kg

DRUGS (6)
  1. ZOLOFT [Suspect]
     Active Substance: SERTRALINE HYDROCHLORIDE
     Indication: DEPRESSION
     Route: 048
     Dates: start: 20150713, end: 20150715
  2. XANAX [Concomitant]
     Active Substance: ALPRAZOLAM
  3. FISH OIL [Concomitant]
     Active Substance: FISH OIL
  4. ZOLOFT [Suspect]
     Active Substance: SERTRALINE HYDROCHLORIDE
     Indication: ANXIETY
     Route: 048
     Dates: start: 20150713, end: 20150715
  5. ELDERBERRY IMMUNE BOOSTER [Concomitant]
  6. MULTIVITAMIN [Concomitant]
     Active Substance: VITAMINS

REACTIONS (6)
  - Hypokinesia [None]
  - Musculoskeletal stiffness [None]
  - Feeling abnormal [None]
  - Mental impairment [None]
  - Headache [None]
  - Emotional poverty [None]

NARRATIVE: CASE EVENT DATE: 20150715
